FAERS Safety Report 9870781 (Version 1)
Quarter: 2014Q1

REPORT INFORMATION
  Report Type: Report from Study
  Country: US (occurrence: US)
  Receive Date: 20140205
  Receipt Date: 20140205
  Transmission Date: 20141002
  Serious: Yes (Other)
  Sender: FDA-Public Use
  Company Number: US-ABBVIE-14P-163-1197920-00

PATIENT
  Sex: 0

DRUGS (2)
  1. VALPROIC ACID [Suspect]
     Indication: NEOPLASM MALIGNANT
     Route: 048
  2. BEVACIZUMAB [Suspect]
     Indication: NEOPLASM MALIGNANT
     Route: 042

REACTIONS (1)
  - Deep vein thrombosis [Unknown]
